FAERS Safety Report 24590722 (Version 2)
Quarter: 2024Q4

REPORT INFORMATION
  Report Type: Spontaneous
  Country: US (occurrence: US)
  Receive Date: 20241107
  Receipt Date: 20241126
  Transmission Date: 20250115
  Serious: Yes (Hospitalization, Other)
  Sender: AMGEN
  Company Number: US-AMGEN-USASP2024210131

PATIENT
  Sex: Female

DRUGS (3)
  1. IMDELLTRA [Suspect]
     Active Substance: TARLATAMAB-DLLE
     Indication: Medullary thyroid cancer
     Dosage: UNK, C1D1
     Route: 065
     Dates: start: 20241022, end: 20241022
  2. IMDELLTRA [Suspect]
     Active Substance: TARLATAMAB-DLLE
     Dosage: UNK, C1D8
     Route: 065
     Dates: start: 20241029, end: 20241029
  3. IMDELLTRA [Suspect]
     Active Substance: TARLATAMAB-DLLE
     Dosage: UNK, C1D15
     Route: 065
     Dates: start: 20241105

REACTIONS (4)
  - Cytokine release syndrome [Unknown]
  - Tumour pseudoprogression [Unknown]
  - Immune effector cell-associated neurotoxicity syndrome [Recovered/Resolved]
  - Off label use [Unknown]

NARRATIVE: CASE EVENT DATE: 20241001
